FAERS Safety Report 17022087 (Version 1)
Quarter: 2019Q4

REPORT INFORMATION
  Report Type: Spontaneous
  Country: US (occurrence: US)
  Receive Date: 20191008
  Receipt Date: 20191008
  Transmission Date: 20200122
  Serious: Yes (Death)
  Sender: FDA-Public Use
  Company Number: None

PATIENT
  Age: 83 Year
  Sex: Female

DRUGS (1)
  1. AMBRISENTAN 5MG TAB (X30) [Suspect]
     Active Substance: AMBRISENTAN
     Route: 048
     Dates: start: 20190719, end: 20190819

REACTIONS (1)
  - Death [None]
